FAERS Safety Report 7608634-8 (Version None)
Quarter: 2011Q3

REPORT INFORMATION
  Report Type: 
  Country: None (occurrence: None)
  Receive Date: 20110714
  Receipt Date: 20110707
  Transmission Date: 20111222
  Serious: Yes (Other)
  Sender: FDA-Public Use
  Company Number: PHHY2011US60800

PATIENT
  Sex: Male

DRUGS (1)
  1. ZOMETA [Suspect]
     Dates: start: 20090901

REACTIONS (4)
  - ORAL MUCOSAL ERYTHEMA [None]
  - PAIN IN JAW [None]
  - OEDEMA MUCOSAL [None]
  - OSTEONECROSIS OF JAW [None]
